FAERS Safety Report 7897984-6 (Version None)
Quarter: 2011Q4

REPORT INFORMATION
  Report Type: 
  Country: None (occurrence: None)
  Receive Date: 20111107
  Receipt Date: 20111107
  Transmission Date: 20120403
  Serious: Yes (Hospitalization)
  Sender: FDA-Public Use
  Company Number: None

PATIENT
  Age: 64 Year
  Sex: Female
  Weight: 859.1 kg

DRUGS (2)
  1. RITUXIMAB [Suspect]
     Indication: CHRONIC LYMPHOCYTIC LEUKAEMIA
     Dosage: 375 MG/M2
     Route: 042
     Dates: start: 20110702, end: 20110829
  2. BENDAMUSTINE [Concomitant]
     Indication: CHRONIC LYMPHOCYTIC LEUKAEMIA
     Dosage: 90 MG/M2
     Route: 042
     Dates: start: 20110702, end: 20110829

REACTIONS (3)
  - HAEMOGLOBIN DECREASED [None]
  - FEBRILE NEUTROPENIA [None]
  - HYPOKALAEMIA [None]
